FAERS Safety Report 7893921-9 (Version None)
Quarter: 2011Q4

REPORT INFORMATION
  Report Type: 
  Country: None (occurrence: None)
  Receive Date: 20111104
  Receipt Date: 20111101
  Transmission Date: 20120403
  Serious: Yes (Other)
  Sender: FDA-Public Use
  Company Number: US-PFIZER INC-2011143934

PATIENT
  Sex: Female
  Weight: 108.8 kg

DRUGS (6)
  1. PRISTIQ [Suspect]
     Indication: ANXIETY
  2. FLEXERIL [Concomitant]
     Dosage: UNK
  3. MOTRIN [Concomitant]
     Dosage: UNK
  4. WELLBUTRIN [Concomitant]
     Dosage: UNK, 2X/DAY
  5. PRISTIQ [Suspect]
     Indication: DEPRESSION
     Dosage: 50 MG, 1X/DAY
     Route: 048
     Dates: start: 20100226, end: 20110101
  6. CLONAZEPAM [Concomitant]
     Dosage: 1 MG, AS NEEDED

REACTIONS (23)
  - ORGASM ABNORMAL [None]
  - ABNORMAL DREAMS [None]
  - LETHARGY [None]
  - EJACULATION DELAYED [None]
  - ABNORMAL BEHAVIOUR [None]
  - COMPULSIONS [None]
  - FATIGUE [None]
  - DIZZINESS [None]
  - IRRITABILITY [None]
  - DRUG DEPENDENCE [None]
  - NERVOUS SYSTEM DISORDER [None]
  - BLOOD CHOLESTEROL INCREASED [None]
  - THINKING ABNORMAL [None]
  - TINNITUS [None]
  - SOMNOLENCE [None]
  - CONFUSIONAL STATE [None]
  - DEPRESSION [None]
  - SENSORY DISTURBANCE [None]
  - DRY MOUTH [None]
  - HYPERHIDROSIS [None]
  - LIBIDO DECREASED [None]
  - PARAESTHESIA [None]
  - ANXIETY [None]
